FAERS Safety Report 22605034 (Version 1)
Quarter: 2023Q2

REPORT INFORMATION
  Report Type: Report from Study
  Country: US (occurrence: US)
  Receive Date: 20230615
  Receipt Date: 20230615
  Transmission Date: 20230721
  Serious: Yes (Hospitalization, Other)
  Sender: FDA-Public Use
  Company Number: US-BRISTOL-MYERS SQUIBB COMPANY-2023-077565

PATIENT
  Age: 67 Year
  Sex: Female
  Weight: 67.9 kg

DRUGS (17)
  1. DARATUMUMAB [Suspect]
     Active Substance: DARATUMUMAB
     Indication: Plasma cell myeloma refractory
     Dosage: LAST DOSE OF STUDY DRUG 22-MAY-2023
     Route: 058
     Dates: start: 20230213, end: 20230522
  2. IBERDOMIDE [Suspect]
     Active Substance: IBERDOMIDE
     Indication: Plasma cell myeloma refractory
     Dosage: LAST DOSE OF STUDY DRUG 29-MAY-2023
     Route: 048
     Dates: start: 20230213, end: 20230529
  3. DEXAMETHASONE [Concomitant]
     Active Substance: DEXAMETHASONE
     Indication: Plasma cell myeloma refractory
     Dosage: LAST DOSE OF STUDY DRUG 29-MAY-2023
     Route: 048
     Dates: start: 20230213, end: 20230529
  4. ACYCLOVIR [Concomitant]
     Active Substance: ACYCLOVIR
  5. ALENDRONATE [Concomitant]
     Active Substance: ALENDRONATE SODIUM
  6. ASPIRIN [Concomitant]
     Active Substance: ASPIRIN
  7. CETIRIZINE [Concomitant]
     Active Substance: CETIRIZINE HYDROCHLORIDE
  8. CHOLECALCIFEROL [Concomitant]
     Active Substance: CHOLECALCIFEROL
  9. GLUCOSAMINE [Concomitant]
     Active Substance: GLUCOSAMINE
  10. OMEGA-3 FATTY ACIDS [Concomitant]
     Active Substance: OMEGA-3 FATTY ACIDS
  11. PANTOPRAZOLE [Concomitant]
     Active Substance: PANTOPRAZOLE
  12. POTASSIUM CHLORIDE [Concomitant]
     Active Substance: POTASSIUM CHLORIDE
  13. PROCHLORPERAZINE [Concomitant]
     Active Substance: PROCHLORPERAZINE
  14. ROSUVASTATIN [Concomitant]
     Active Substance: ROSUVASTATIN
  15. SIMETHICONE (DIMETHICONE) [Concomitant]
     Active Substance: DIMETHICONE
  16. TOPIRAMATE [Concomitant]
     Active Substance: TOPIRAMATE
  17. ZOLEDRONIC ACID [Concomitant]
     Active Substance: ZOLEDRONIC ACID

REACTIONS (1)
  - Febrile neutropenia [Recovered/Resolved]

NARRATIVE: CASE EVENT DATE: 20230530
